FAERS Safety Report 5069792-5 (Version None)
Quarter: 2006Q3

REPORT INFORMATION
  Report Type: 
  Country: None (occurrence: None)
  Receive Date: 20060803
  Receipt Date: 20060726
  Transmission Date: 20061208
  Serious: Yes (Hospitalization)
  Sender: FDA-Public Use
  Company Number: IT-GLAXOSMITHKLINE-B0432803A

PATIENT
  Sex: Female
  Weight: 53 kg

DRUGS (1)
  1. POLIDENT DENTURE ADHESIVE, FLAVOR FREE [Suspect]
     Route: 061
     Dates: start: 19800101, end: 20060724

REACTIONS (3)
  - BLOOD COPPER DECREASED [None]
  - BLOOD ZINC INCREASED [None]
  - NEUROPATHY [None]
